FAERS Safety Report 21729385 (Version 2)
Quarter: 2022Q4

REPORT INFORMATION
  Report Type: Spontaneous
  Country: US (occurrence: US)
  Receive Date: 20221214
  Receipt Date: 20221219
  Transmission Date: 20230112
  Serious: Yes (Other)
  Sender: FDA-Public Use
  Company Number: US-PFIZER INC-202201364411

PATIENT
  Age: 85 Year
  Sex: Female

DRUGS (1)
  1. SULFASALAZINE [Suspect]
     Active Substance: SULFASALAZINE
     Indication: Urinary tract infection
     Dosage: UNK

REACTIONS (4)
  - Rash erythematous [Unknown]
  - Lip swelling [Unknown]
  - Paraesthesia oral [Unknown]
  - Off label use [Unknown]
